FAERS Safety Report 8781259 (Version 2)
Quarter: 2012Q4

REPORT INFORMATION
  Report Type: 
  Country: AR (occurrence: AR)
  Receive Date: 20120913
  Receipt Date: 20121022
  Transmission Date: 20130627
  Serious: Yes (Other)
  Sender: FDA-Public Use
  Company Number: PHHY2012AR079336

PATIENT
  Sex: Female

DRUGS (2)
  1. TRILEPTAL [Suspect]
     Indication: EPILEPSY
     Dosage: 300 mg, TID
     Route: 048
  2. TRILEPTAL [Suspect]
     Dosage: 2 DF, daily
     Route: 048

REACTIONS (3)
  - VIIth nerve paralysis [Recovered/Resolved]
  - Convulsion [Recovered/Resolved]
  - Nervousness [Recovered/Resolved]
